FAERS Safety Report 19276412 (Version 1)
Quarter: 2021Q2

REPORT INFORMATION
  Report Type: Spontaneous
  Country: US (occurrence: US)
  Receive Date: 20210520
  Receipt Date: 20210520
  Transmission Date: 20210717
  Serious: Yes (Hospitalization, Other)
  Sender: FDA-Public Use
  Company Number: US-009507513-2105USA002871

PATIENT
  Age: 47 Year
  Sex: Male
  Weight: 78.8 kg

DRUGS (24)
  1. DOXORUBICIN HYDROCHLORIDE. [Suspect]
     Active Substance: DOXORUBICIN HYDROCHLORIDE
     Indication: B-CELL TYPE ACUTE LEUKAEMIA
     Dosage: 10 MG/M2, CYCLIC: (DAYS 1?4 Q28 DAYS)
     Route: 042
     Dates: start: 20210330, end: 20210402
  2. MAGNESIUM OXIDE. [Concomitant]
     Active Substance: MAGNESIUM OXIDE
  3. ETOPOSIDE. [Suspect]
     Active Substance: ETOPOSIDE
     Indication: B-CELL TYPE ACUTE LEUKAEMIA
     Dosage: 50 MG/M2, CYCLIC (DAYS 1?4 Q28 DAYS)
     Route: 042
     Dates: start: 20210330, end: 20210402
  4. ZOFRAN [Concomitant]
     Active Substance: ONDANSETRON HYDROCHLORIDE
  5. QUETIAPINE. [Concomitant]
     Active Substance: QUETIAPINE
  6. ROSUVASTATIN. [Concomitant]
     Active Substance: ROSUVASTATIN
  7. ZOVIRAX [Concomitant]
     Active Substance: ACYCLOVIR
  8. DIFLUCAN [Concomitant]
     Active Substance: FLUCONAZOLE
  9. INOTUZUMAB OZOGAMICIN [Suspect]
     Active Substance: INOTUZUMAB OZOGAMICIN
     Indication: B-CELL TYPE ACUTE LEUKAEMIA
     Dosage: 0.6 MG, DAY 8 AND DAY 15 Q28 DAYS
     Route: 042
     Dates: start: 20210406
  10. CYCLOPHOSPHAMIDE. [Suspect]
     Active Substance: CYCLOPHOSPHAMIDE
     Indication: B-CELL TYPE ACUTE LEUKAEMIA
     Dosage: 750 MG/M2, CYCLIC (DAYS 5 Q28 DAYS)
     Route: 042
     Dates: start: 20210403, end: 20210403
  11. URSODIOL. [Concomitant]
     Active Substance: URSODIOL
  12. VINCRISTINE SULFATE. [Suspect]
     Active Substance: VINCRISTINE SULFATE
     Indication: B-CELL TYPE ACUTE LEUKAEMIA
     Dosage: 0.4 MG/M2/DAY, CYCLIC (DAYS 1?4 Q28 DAYS)
     Route: 042
     Dates: start: 20210330, end: 20210402
  13. COREG [Suspect]
     Active Substance: CARVEDILOL
     Dosage: 12.5 MILLIGRAM, 2X/DAY
     Route: 048
     Dates: start: 20210414
  14. HYDROCORTISONE. [Concomitant]
     Active Substance: HYDROCORTISONE
  15. LEVAQUIN [Concomitant]
     Active Substance: LEVOFLOXACIN
  16. COMPAZINE [Concomitant]
     Active Substance: PROCHLORPERAZINE MALEATE
  17. COREG [Suspect]
     Active Substance: CARVEDILOL
     Indication: HYPERTENSION
     Dosage: 12.5 MILLIGRAM, 2X/DAY
     Route: 048
     Dates: start: 20180605, end: 20210412
  18. ZESTRIL [Suspect]
     Active Substance: LISINOPRIL
     Indication: HYPERTENSION
     Dosage: 20 MILLIGRAM, DAILY
     Route: 048
     Dates: start: 20180502, end: 20210412
  19. PEPCID [Concomitant]
     Active Substance: FAMOTIDINE
  20. POTASSIUM CHLORIDE. [Concomitant]
     Active Substance: POTASSIUM CHLORIDE
  21. TRIM [SULFAMETHOXAZOLE;TRIMETHOPRIM] [Concomitant]
  22. PRINIVIL [Suspect]
     Active Substance: LISINOPRIL
     Indication: HYPERTENSION
     Dosage: 20 MILLIGRAM, DAILY
     Route: 048
     Dates: start: 20180502, end: 20210412
  23. PREDNISONE. [Suspect]
     Active Substance: PREDNISONE
     Indication: B-CELL TYPE ACUTE LEUKAEMIA
     Dosage: 60 MG/M2, CYCLIC (BID, DAYS 1?5 Q28 DAYS)
     Route: 048
     Dates: start: 20210330, end: 20210403
  24. OMEGA?3 FATTY ACIDS [Concomitant]
     Active Substance: OMEGA-3 FATTY ACIDS

REACTIONS (2)
  - Orthostatic hypotension [Not Recovered/Not Resolved]
  - Syncope [Recovering/Resolving]

NARRATIVE: CASE EVENT DATE: 20210411
